FAERS Safety Report 25059302 (Version 1)
Quarter: 2025Q1

REPORT INFORMATION
  Report Type: Spontaneous
  Country: FR (occurrence: FR)
  Receive Date: 20250310
  Receipt Date: 20250310
  Transmission Date: 20250408
  Serious: Yes (Other)
  Sender: MYLAN
  Company Number: FR-MYLANLABS-2025M1018348

PATIENT
  Age: 12 Year
  Sex: Female

DRUGS (2)
  1. ETOPOSIDE [Suspect]
     Active Substance: ETOPOSIDE
     Indication: Medulloblastoma
     Dosage: 25 MILLIGRAM/SQ. METER, QD (25 MG/M2/DOSE)
  2. AXITINIB [Suspect]
     Active Substance: AXITINIB
     Indication: Medulloblastoma
     Dosage: 0.9 MILLIGRAM/SQ. METER, BID (0.9 MG/M2/DOSE)

REACTIONS (4)
  - Drug ineffective for unapproved indication [Unknown]
  - Disease progression [Unknown]
  - Fatigue [Unknown]
  - Off label use [Unknown]
